FAERS Safety Report 22659844 (Version 2)
Quarter: 2024Q1

REPORT INFORMATION
  Report Type: Spontaneous
  Country: AU (occurrence: AU)
  Receive Date: 20230630
  Receipt Date: 20240119
  Transmission Date: 20240410
  Serious: Yes (Death, Life-Threatening, Hospitalization, Other)
  Sender: FDA-Public Use
  Company Number: None

PATIENT
  Age: 76 Year
  Sex: Female

DRUGS (6)
  1. LEVETIRACETAM [Suspect]
     Active Substance: LEVETIRACETAM
     Indication: Seizure
     Dosage: 2300 MILLIGRAM
     Dates: start: 20230316, end: 202303
  2. LOPERAMIDE HYDROCHLORIDE [Suspect]
     Active Substance: LOPERAMIDE HYDROCHLORIDE
     Indication: Gastrointestinal stoma complication
     Dosage: 20 MILLIGRAM, 4X/DAY (QID)
     Route: 048
     Dates: start: 20230302
  3. PHENYTOIN [Suspect]
     Active Substance: PHENYTOIN
     Indication: Product used for unknown indication
     Dosage: UNK
  4. CODEINE [Concomitant]
     Active Substance: CODEINE
     Indication: Product used for unknown indication
     Dosage: UNK
  5. GABAPENTIN [Concomitant]
     Active Substance: GABAPENTIN
     Indication: Product used for unknown indication
     Dosage: UNK
  6. OMEPRAZOLE [Concomitant]
     Active Substance: OMEPRAZOLE
     Indication: Product used for unknown indication
     Dosage: UNK

REACTIONS (9)
  - Cardiac arrest [Fatal]
  - Cardiogenic shock [Fatal]
  - Respiratory failure [Not Recovered/Not Resolved]
  - Seizure [Not Recovered/Not Resolved]
  - Ventricular tachycardia [Not Recovered/Not Resolved]
  - Aspiration [Not Recovered/Not Resolved]
  - Electrocardiogram QT prolonged [Not Recovered/Not Resolved]
  - Hypomagnesaemia [Not Recovered/Not Resolved]
  - Ventricular fibrillation [Not Recovered/Not Resolved]

NARRATIVE: CASE EVENT DATE: 20230316
